FAERS Safety Report 23193431 (Version 3)
Quarter: 2023Q4

REPORT INFORMATION
  Report Type: Report from Study
  Country: IT (occurrence: IT)
  Receive Date: 20231116
  Receipt Date: 20231123
  Transmission Date: 20240109
  Serious: Yes (Hospitalization, Other)
  Sender: FDA-Public Use
  Company Number: IT-009507513-2208ITA000441

PATIENT
  Age: 77 Year
  Sex: Female

DRUGS (3)
  1. CARBOPLATIN [Suspect]
     Active Substance: CARBOPLATIN
     Indication: Triple negative breast cancer
     Dosage: STRENGTH: AREA UNDER CURVE (AUC) 2, WEEKLY (TOTAL DAILY DOSE: 158 MG)
     Route: 042
     Dates: start: 20220623, end: 20220916
  2. PEMBROLIZUMAB [Suspect]
     Active Substance: PEMBROLIZUMAB
     Indication: Triple negative breast cancer
     Dosage: STRENGTH: 200 MG, EVERY 21 DAYS (TOTAL DAILY DOSE: 200 MG)
     Route: 042
     Dates: start: 20220623, end: 20220916
  3. TAXOL [Suspect]
     Active Substance: PACLITAXEL
     Indication: Triple negative breast cancer
     Dosage: STRENGTH: 80 MG/MG, WEEKLY (TOTAL DAILY DOSE: 125 MG)
     Route: 042
     Dates: start: 20220623, end: 20220916

REACTIONS (6)
  - Acute kidney injury [Recovered/Resolved with Sequelae]
  - Neuropathy peripheral [Recovered/Resolved]
  - Asthenia [Recovered/Resolved]
  - Nausea [Recovered/Resolved]
  - Diarrhoea [Recovered/Resolved]
  - SARS-CoV-2 test positive [Unknown]

NARRATIVE: CASE EVENT DATE: 20220711
